FAERS Safety Report 9653075 (Version 1)
Quarter: 2013Q4

REPORT INFORMATION
  Report Type: Spontaneous
  Country: US (occurrence: US)
  Receive Date: 20131029
  Receipt Date: 20131029
  Transmission Date: 20140711
  Serious: No
  Sender: FDA-Public Use
  Company Number: US-BIOGENIDEC-2013BI078564

PATIENT
  Age: 45 Year
  Sex: Female

DRUGS (5)
  1. TECFIDERA [Suspect]
     Indication: MULTIPLE SCLEROSIS
     Route: 048
     Dates: start: 20130702
  2. ALBUTEROL SULFATE [Concomitant]
  3. DICYCLOMINE HCL [Concomitant]
  4. ESTRADIOL [Concomitant]
  5. FLUCONAZOLE [Concomitant]

REACTIONS (2)
  - Headache [Unknown]
  - Myalgia [Unknown]
